FAERS Safety Report 22155050 (Version 1)
Quarter: 2023Q1

REPORT INFORMATION
  Report Type: Spontaneous
  Country: US (occurrence: US)
  Receive Date: 20230330
  Receipt Date: 20230330
  Transmission Date: 20230417
  Serious: No
  Sender: FDA-Public Use
  Company Number: US-AMNEAL PHARMACEUTICALS-2023-AMRX-00140

PATIENT
  Sex: Male

DRUGS (2)
  1. DEXTROMETHORPHAN\PROMETHAZINE [Suspect]
     Active Substance: DEXTROMETHORPHAN\PROMETHAZINE
     Indication: Cough
     Route: 065
  2. XELJANZ [Suspect]
     Active Substance: TOFACITINIB CITRATE
     Indication: Product used for unknown indication
     Dosage: 50 MG, 1 TABLETS, 2 /DAY
     Route: 048
     Dates: start: 20190709

REACTIONS (1)
  - Diarrhoea [Not Recovered/Not Resolved]
